FAERS Safety Report 15207764 (Version 1)
Quarter: 2018Q3

REPORT INFORMATION
  Report Type: Spontaneous
  Country: US (occurrence: US)
  Receive Date: 20180727
  Receipt Date: 20180727
  Transmission Date: 20181010
  Serious: No
  Sender: FDA-Public Use
  Company Number: US-ALLERGAN-1768034US

PATIENT
  Age: 77 Year
  Sex: Male

DRUGS (1)
  1. ANDRODERM [Suspect]
     Active Substance: TESTOSTERONE
     Indication: RED BLOOD CELL COUNT DECREASED
     Dosage: 4 MG, QD
     Route: 062
     Dates: start: 2016, end: 201711

REACTIONS (6)
  - Sensation of foreign body [Unknown]
  - Off label use [Unknown]
  - Abdominal pain [Recovered/Resolved]
  - Blood disorder [Unknown]
  - Hypersensitivity [Unknown]
  - Pruritus [Recovered/Resolved]

NARRATIVE: CASE EVENT DATE: 2016
